FAERS Safety Report 21222066 (Version 2)
Quarter: 2022Q3

REPORT INFORMATION
  Report Type: Spontaneous
  Country: PT (occurrence: PT)
  Receive Date: 20220817
  Receipt Date: 20220913
  Transmission Date: 20221026
  Serious: Yes (Life-Threatening, Hospitalization, Other)
  Sender: FDA-Public Use
  Company Number: PT-KRKA-PT2022K09017LIT

PATIENT
  Age: 79 Year
  Sex: Female

DRUGS (3)
  1. APIXABAN [Suspect]
     Active Substance: APIXABAN
     Indication: Atrial fibrillation
     Dosage: UNK
     Route: 048
  2. ASPIRIN [Suspect]
     Active Substance: ASPIRIN
     Indication: Antiplatelet therapy
     Dosage: UNK
     Route: 065
  3. ACETAMINOPHEN [Concomitant]
     Active Substance: ACETAMINOPHEN
     Indication: Pain management
     Dosage: UNK
     Route: 065

REACTIONS (6)
  - Shock haemorrhagic [Recovered/Resolved]
  - Kidney rupture [Recovered/Resolved]
  - Embolic cerebral infarction [Recovered/Resolved]
  - Hemiparesis [Recovered/Resolved]
  - Renal haemorrhage [Recovered/Resolved]
  - Drug ineffective [Unknown]
